FAERS Safety Report 18343403 (Version 1)
Quarter: 2020Q4

REPORT INFORMATION
  Report Type: Spontaneous
  Country: US (occurrence: US)
  Receive Date: 20201001
  Receipt Date: 20201001
  Transmission Date: 20210113
  Serious: Yes (Hospitalization)
  Sender: FDA-Public Use
  Company Number: None

PATIENT
  Age: 64 Year
  Sex: Female

DRUGS (2)
  1. NUZYRA [Concomitant]
     Active Substance: OMADACYCLINE
  2. PULMOZYME [Suspect]
     Active Substance: DORNASE ALFA
     Indication: CYTOGENETIC ABNORMALITY
     Route: 055
     Dates: start: 20180524

REACTIONS (1)
  - Pneumonia [None]

NARRATIVE: CASE EVENT DATE: 20200911
